FAERS Safety Report 17257381 (Version 1)
Quarter: 2020Q1

REPORT INFORMATION
  Report Type: Report from Study
  Country: None (occurrence: US)
  Receive Date: 20200110
  Receipt Date: 20200110
  Transmission Date: 20200409
  Serious: Yes (Hospitalization)
  Sender: FDA-Public Use
  Company Number: US-ABBVIE-19K-163-2935050-00

PATIENT
  Sex: Male
  Weight: 111.23 kg

DRUGS (1)
  1. HUMIRA [Suspect]
     Active Substance: ADALIMUMAB
     Indication: RHEUMATOID ARTHRITIS
     Route: 058
     Dates: start: 201812

REACTIONS (6)
  - Liver function test increased [Recovered/Resolved]
  - Pneumonia [Unknown]
  - Liver function test increased [Unknown]
  - Pleurisy [Unknown]
  - Immunodeficiency [Unknown]
  - Influenza [Recovering/Resolving]

NARRATIVE: CASE EVENT DATE: 2019
